FAERS Safety Report 7103238-8 (Version None)
Quarter: 2010Q4

REPORT INFORMATION
  Report Type: 
  Country: None (occurrence: None)
  Receive Date: 20101115
  Receipt Date: 20101104
  Transmission Date: 20110411
  Serious: Yes (Death, Life-Threatening, Other)
  Sender: FDA-Public Use
  Company Number: US-MYLANLABS-2009S1010234

PATIENT
  Age: 58 Year
  Sex: Male
  Weight: 58.97 kg

DRUGS (19)
  1. FENTANYL-100 [Suspect]
     Indication: BACK PAIN
     Dosage: Q72H
     Route: 062
     Dates: start: 20080723, end: 20080902
  2. FENTANYL-100 [Suspect]
     Indication: PAIN IN EXTREMITY
     Dosage: Q72H
     Route: 062
     Dates: start: 20080723, end: 20080902
  3. VICODIN [Suspect]
     Indication: BREAKTHROUGH PAIN
     Route: 048
  4. PROZAC [Concomitant]
  5. TAMSULOSIN [Concomitant]
  6. OMEPRAZOLE [Concomitant]
     Route: 048
  7. LISINOPRIL [Concomitant]
     Route: 048
  8. NORVASC [Concomitant]
  9. SYMBICORT [Concomitant]
  10. NEURONTIN [Concomitant]
     Route: 048
  11. PRAVASTATIN [Concomitant]
  12. FLEXERIL [Concomitant]
  13. CARDURA [Concomitant]
  14. ATROVENT [Concomitant]
  15. ALBUTEROL [Concomitant]
  16. LYRICA [Concomitant]
  17. CRESTOR [Concomitant]
  18. HYDROCODONE BITARTRATE AND ACETAMINOPHEN [Concomitant]
     Route: 048
  19. XANAX [Concomitant]
     Dosage: TAKEN THE PREVIOUS NIGHT
     Route: 048

REACTIONS (4)
  - CHRONIC RESPIRATORY FAILURE [None]
  - COMA [None]
  - HYPOXIC-ISCHAEMIC ENCEPHALOPATHY [None]
  - OVERDOSE [None]
